FAERS Safety Report 23084188 (Version 2)
Quarter: 2023Q4

REPORT INFORMATION
  Report Type: Report from Study
  Country: CA (occurrence: CA)
  Receive Date: 20231019
  Receipt Date: 20231110
  Transmission Date: 20240109
  Serious: Yes (Other)
  Sender: FDA-Public Use
  Company Number: CA-TEVA-2023-CA-2934113

PATIENT
  Age: 52 Year
  Sex: Female

DRUGS (1)
  1. AJOVY [Suspect]
     Active Substance: FREMANEZUMAB-VFRM
     Indication: Migraine prophylaxis
     Route: 058
     Dates: end: 2023

REACTIONS (8)
  - Dyspnoea [Recovering/Resolving]
  - Drug hypersensitivity [Unknown]
  - Rash pruritic [Recovering/Resolving]
  - Urticaria [Recovering/Resolving]
  - Skin hyperpigmentation [Recovering/Resolving]
  - Peripheral coldness [Recovering/Resolving]
  - Dysgeusia [Recovering/Resolving]
  - Swelling face [Recovering/Resolving]
